FAERS Safety Report 15899373 (Version 2)
Quarter: 2019Q1

REPORT INFORMATION
  Report Type: Report from Study
  Country: AU (occurrence: AU)
  Receive Date: 20190201
  Receipt Date: 20190201
  Transmission Date: 20190417
  Serious: Yes (Other)
  Sender: FDA-Public Use
  Company Number: PHHY2016AU055850

PATIENT
  Age: 50 Year
  Sex: Male

DRUGS (9)
  1. MYCOPHENOLATE MOFETIL. [Suspect]
     Active Substance: MYCOPHENOLATE MOFETIL
     Indication: PYODERMA GANGRENOSUM
     Dosage: UNK UNK, BID
     Route: 048
     Dates: start: 2015, end: 201603
  2. CICLOSPORIN [Suspect]
     Active Substance: CYCLOSPORINE
     Indication: PYODERMA GANGRENOSUM
     Dosage: UNK UNK, BID
     Route: 048
     Dates: start: 20151218, end: 20160418
  3. WARFARIN [Concomitant]
     Active Substance: WARFARIN
     Indication: PRODUCT USED FOR UNKNOWN INDICATION
     Route: 065
  4. TACROLIMUS. [Suspect]
     Active Substance: TACROLIMUS
     Indication: PYODERMA GANGRENOSUM
     Dosage: UNK UNK, BID
     Route: 048
     Dates: start: 2015, end: 201610
  5. ENDEP [Concomitant]
     Active Substance: AMITRIPTYLINE HYDROCHLORIDE
     Indication: PAIN
     Dosage: NIGHT
     Route: 048
     Dates: start: 2015, end: 2016
  6. COSENTYX [Suspect]
     Active Substance: SECUKINUMAB
     Indication: PYODERMA GANGRENOSUM
     Dosage: UNK UNK, QW (FOR 5 DOSES THEN MONTHLY)
     Route: 058
     Dates: start: 20160422, end: 201608
  7. MYCOPHENOLATE MOFETIL. [Suspect]
     Active Substance: MYCOPHENOLATE MOFETIL
     Dosage: UNK UNK, BID
     Route: 048
     Dates: start: 20180626, end: 20180824
  8. PREGABALIN. [Concomitant]
     Active Substance: PREGABALIN
     Indication: PAIN
     Dosage: UNK UNK, BID
     Route: 048
     Dates: start: 2015, end: 2016
  9. PREDNISOLONE. [Concomitant]
     Active Substance: PREDNISOLONE
     Indication: PYODERMA GANGRENOSUM
     Dosage: UNK UNK, QD
     Route: 048
     Dates: start: 2015

REACTIONS (7)
  - Drug ineffective [Not Recovered/Not Resolved]
  - Product use in unapproved indication [Unknown]
  - Adjustment disorder with depressed mood [Unknown]
  - Ulcer [Unknown]
  - General physical health deterioration [Unknown]
  - Acute kidney injury [Recovered/Resolved]
  - Weight increased [Unknown]

NARRATIVE: CASE EVENT DATE: 2015
